FAERS Safety Report 8417067-6 (Version None)
Quarter: 2012Q2

REPORT INFORMATION
  Report Type: 
  Country: None (occurrence: None)
  Receive Date: 20120606
  Receipt Date: 20120529
  Transmission Date: 20120825
  Serious: Yes (Hospitalization)
  Sender: FDA-Public Use
  Company Number: US-JNJFOC-20111204925

PATIENT
  Sex: Female
  Weight: 63.7 kg

DRUGS (21)
  1. FERROUS SULFATE TAB [Concomitant]
  2. LIDEX [Concomitant]
  3. METHOTREXATE [Concomitant]
  4. AMITRIPTYLINE HCL [Concomitant]
  5. ALBUTEROL [Concomitant]
     Route: 055
  6. CEFZIL [Concomitant]
  7. SINGULAIR [Concomitant]
  8. MULTIPLE VITAMIN [Concomitant]
  9. REMICADE [Suspect]
     Indication: CROHN'S DISEASE
     Route: 042
  10. REMICADE [Suspect]
     Route: 042
     Dates: start: 20071114, end: 20111101
  11. MESALAMINE [Concomitant]
     Route: 048
  12. FOLIC ACID [Concomitant]
  13. VITAMIN D [Concomitant]
  14. CLOBETASOL PROPIONATE [Concomitant]
  15. FLAGYL [Concomitant]
  16. MUPIROCIN [Concomitant]
  17. BACTROBAN [Concomitant]
     Route: 045
  18. FLUOCINONIDE [Concomitant]
  19. OMEGA 3 FATTY ACID [Concomitant]
  20. FLORASTOR [Concomitant]
  21. LUXIQ [Concomitant]

REACTIONS (1)
  - CROHN'S DISEASE [None]
